FAERS Safety Report 5148988-8 (Version None)
Quarter: 2006Q4

REPORT INFORMATION
  Report Type: 
  Country: None (occurrence: None)
  Receive Date: 20061108
  Receipt Date: 20061030
  Transmission Date: 20070319
  Serious: Yes (Other)
  Sender: FDA-Public Use
  Company Number: HQWYE107709AUG04

PATIENT
  Age: 77 Year
  Sex: Female
  Weight: 68.1 kg

DRUGS (3)
  1. PREMARIN [Suspect]
     Indication: HORMONE REPLACEMENT THERAPY
     Dosage: TABLET
  2. PREMARIN [Suspect]
  3. PROVERA [Suspect]

REACTIONS (7)
  - BREAST CANCER METASTATIC [None]
  - BREAST CYST [None]
  - FEELING ABNORMAL [None]
  - OESTROGEN RECEPTOR ASSAY POSITIVE [None]
  - PROGESTERONE RECEPTOR ASSAY POSITIVE [None]
  - RASH ERYTHEMATOUS [None]
  - RASH PRURITIC [None]
